FAERS Safety Report 5972870-7 (Version None)
Quarter: 2008Q4

REPORT INFORMATION
  Report Type: 
  Country: None (occurrence: None)
  Receive Date: 20081126
  Receipt Date: 20081126
  Transmission Date: 20090506
  Serious: No
  Sender: FDA-Public Use
  Company Number: None

PATIENT
  Age: 40 Year
  Sex: Female
  Weight: 86.1834 kg

DRUGS (2)
  1. LAMICTAL [Suspect]
     Indication: ANXIETY
     Dosage: PILL ONCE DAILY PO
     Route: 048
     Dates: start: 20080823, end: 20080915
  2. LAMICTAL [Suspect]
     Indication: DEPRESSION
     Dosage: PILL ONCE DAILY PO
     Route: 048
     Dates: start: 20080823, end: 20080915

REACTIONS (6)
  - HEART RATE INCREASED [None]
  - HYPOPHAGIA [None]
  - NAUSEA [None]
  - PRODUCT QUALITY ISSUE [None]
  - TREMOR [None]
  - WEIGHT DECREASED [None]
